FAERS Safety Report 9707942 (Version 1)
Quarter: 2013Q4

REPORT INFORMATION
  Report Type: Spontaneous
  Country: FR (occurrence: FR)
  Receive Date: 20131125
  Receipt Date: 20131125
  Transmission Date: 20140711
  Serious: Yes (Hospitalization)
  Sender: FDA-Public Use
  Company Number: FR-TEVA-444631ISR

PATIENT
  Age: 77 Year
  Sex: Male

DRUGS (4)
  1. AZILECT 1 MG [Suspect]
     Indication: PARKINSON^S DISEASE
     Dosage: 1 DOSAGE FORMS DAILY; LONG-TERM
     Route: 048
  2. NEUPRO 6MG/24H [Suspect]
     Indication: PARKINSON^S DISEASE
     Dosage: 6 MILLIGRAM DAILY;
     Route: 062
     Dates: start: 201306, end: 20130706
  3. COVERAM 5MG/5MG [Suspect]
     Indication: HYPERTENSION
     Dosage: 1 DOSAGE FORMS DAILY; AMLODIPINE 5MG/PERINDOPRIL 5MG;LONG TERM
     Route: 048
  4. SINEMET 100MG/10MG [Suspect]
     Indication: PARKINSON^S DISEASE
     Dosage: 5 DOSAGE FORMS DAILY; LON-TERM TREATMENT, 2 TABLETS IN THE MORNING, 2 AT NOON AND ONE AT NIGHT
     Route: 048

REACTIONS (3)
  - Malaise [Recovered/Resolved]
  - Loss of consciousness [Recovered/Resolved]
  - Orthostatic hypotension [Recovered/Resolved]
